FAERS Safety Report 9708921 (Version 5)
Quarter: 2014Q1

REPORT INFORMATION
  Report Type: Report from Study
  Country: US (occurrence: US)
  Receive Date: 20131125
  Receipt Date: 20140218
  Transmission Date: 20141002
  Serious: Yes (Hospitalization)
  Sender: FDA-Public Use
  Company Number: US-ACTELION-A-NJ2013-89626

PATIENT
  Age: 72 Year
  Sex: Male

DRUGS (4)
  1. VELETRI [Suspect]
     Indication: PULMONARY ARTERIAL HYPERTENSION
     Dosage: 12 NG/KG, PER MIN
     Route: 042
     Dates: start: 20130924
  2. VELETRI [Suspect]
     Dosage: 10.9 NG/KG, PER MIN
     Route: 042
     Dates: start: 20130923
  3. VELETRI [Suspect]
     Dosage: 7.75 NG/KG, PER MIN
     Route: 042
     Dates: start: 20130924
  4. REVATIO [Suspect]

REACTIONS (20)
  - Pleural effusion [Recovering/Resolving]
  - Dyspnoea [Unknown]
  - Rash [Recovering/Resolving]
  - Pain in jaw [Recovering/Resolving]
  - Nausea [Recovering/Resolving]
  - Flushing [Recovering/Resolving]
  - Pulmonary arterial hypertension [Unknown]
  - Fluid overload [Unknown]
  - Fluid retention [Unknown]
  - Malaise [Recovering/Resolving]
  - Overdose [Recovering/Resolving]
  - Gout [Unknown]
  - Pain in extremity [Unknown]
  - Oedema peripheral [Unknown]
  - Decreased appetite [Unknown]
  - Myalgia [Unknown]
  - Medical device complication [Recovering/Resolving]
  - Catheter site erythema [Unknown]
  - Vomiting [Unknown]
  - Candida infection [Unknown]
